FAERS Safety Report 4466134-0 (Version None)
Quarter: 2004Q4

REPORT INFORMATION
  Report Type: 
  Country: None (occurrence: None)
  Receive Date: 20041004
  Receipt Date: 20040922
  Transmission Date: 20050328
  Serious: Yes (Hospitalization)
  Sender: FDA-Public Use
  Company Number: 2004UW19791

PATIENT
  Age: 79 Year
  Sex: Male

DRUGS (8)
  1. CRESTOR [Suspect]
     Dosage: 10 MG PO
     Route: 048
     Dates: start: 20040501, end: 20040801
  2. COREG [Suspect]
     Dates: end: 20040801
  3. AMIODARONE [Suspect]
     Dates: start: 20040501, end: 20040801
  4. ZESTRIL [Concomitant]
  5. LASIX [Concomitant]
  6. GLUCOPHAGE [Concomitant]
  7. ASPIRIN [Concomitant]
  8. GLIPIZIDE [Concomitant]

REACTIONS (8)
  - BILIARY CIRRHOSIS PRIMARY [None]
  - FATIGUE [None]
  - HEPATITIS GRANULOMATOUS [None]
  - INFECTION [None]
  - NIGHT SWEATS [None]
  - PYREXIA [None]
  - SARCOIDOSIS [None]
  - WEIGHT DECREASED [None]
